FAERS Safety Report 7643067-X (Version None)
Quarter: 2011Q3

REPORT INFORMATION
  Report Type: 
  Country: None (occurrence: None)
  Receive Date: 20110728
  Receipt Date: 20110719
  Transmission Date: 20111222
  Serious: Yes (Hospitalization, Other)
  Sender: FDA-Public Use
  Company Number: US-AMGEN-USASP2011036799

PATIENT
  Age: 55 Year
  Sex: Female

DRUGS (2)
  1. ENBREL [Suspect]
     Indication: RHEUMATOID ARTHRITIS
     Dosage: 50 MG, QWK
     Dates: start: 20020101
  2. ENBREL [Suspect]
     Indication: PSORIATIC ARTHROPATHY

REACTIONS (10)
  - HIP SURGERY [None]
  - DIABETES MELLITUS [None]
  - VOMITING [None]
  - PSORIASIS [None]
  - ABDOMINAL HERNIA [None]
  - INCISION SITE HAEMORRHAGE [None]
  - KNEE OPERATION [None]
  - FEELING OF BODY TEMPERATURE CHANGE [None]
  - ARTHRALGIA [None]
  - WEIGHT DECREASED [None]
